FAERS Safety Report 13825523 (Version 4)
Quarter: 2017Q3

REPORT INFORMATION
  Report Type: Spontaneous
  Country: GB (occurrence: GB)
  Receive Date: 20170802
  Receipt Date: 20170816
  Transmission Date: 20171127
  Serious: Yes (Hospitalization)
  Sender: FDA-Public Use
  Company Number: GB-SA-2017SA137423

PATIENT
  Sex: Male

DRUGS (4)
  1. EMLA [Concomitant]
     Active Substance: LIDOCAINE\PRILOCAINE
     Route: 065
  2. MYOZYME [Suspect]
     Active Substance: ALGLUCOSIDASE ALFA
     Route: 041
     Dates: end: 20170711
  3. HEPARIN [Concomitant]
     Active Substance: HEPARIN SODIUM
     Route: 065
  4. MYOZYME [Suspect]
     Active Substance: ALGLUCOSIDASE ALFA
     Route: 041
     Dates: start: 2017

REACTIONS (6)
  - Rhinorrhoea [Unknown]
  - Lower respiratory tract infection [Unknown]
  - Cough [Unknown]
  - Sepsis [Unknown]
  - Malaise [Unknown]
  - Weight bearing difficulty [Unknown]
